FAERS Safety Report 13569157 (Version 2)
Quarter: 2017Q2

REPORT INFORMATION
  Report Type: Spontaneous
  Country: AU (occurrence: AU)
  Receive Date: 20170522
  Receipt Date: 20170623
  Transmission Date: 20170830
  Serious: Yes (Other)
  Sender: FDA-Public Use
  Company Number: AU-ABBVIE-17P-008-1983416-00

PATIENT
  Age: 46 Year
  Sex: Male

DRUGS (2)
  1. EPILIM [Suspect]
     Active Substance: VALPROATE SODIUM
     Indication: EPILEPSY
     Route: 048
  2. EPILIM [Suspect]
     Active Substance: VALPROATE SODIUM
     Route: 048

REACTIONS (4)
  - Product package associated injury [Unknown]
  - Seizure [Not Recovered/Not Resolved]
  - Product physical issue [Unknown]
  - Drug ineffective [Unknown]
